FAERS Safety Report 6559066-5 (Version None)
Quarter: 2010Q1

REPORT INFORMATION
  Report Type: 
  Country: None (occurrence: None)
  Receive Date: 20100129
  Receipt Date: 20100118
  Transmission Date: 20100710
  Serious: Yes (Other)
  Sender: FDA-Public Use
  Company Number: US-ELI_LILLY_AND_COMPANY-US200704001510

PATIENT
  Sex: Female
  Weight: 66.667 kg

DRUGS (40)
  1. FORTEO [Suspect]
     Indication: OSTEOPOROSIS
     Dosage: 20 UG, DAILY (1/D)
     Dates: start: 20050701, end: 20070301
  2. FORTEO [Suspect]
     Dosage: 20 UG, DAILY (1/D)
     Dates: start: 20071201
  3. FORTEO [Suspect]
     Dosage: 20 UG, DAILY (1/D)
     Dates: end: 20080301
  4. NEURONTIN [Concomitant]
     Indication: PAIN IN EXTREMITY
     Dosage: 600 MG, 3/D
  5. NEURONTIN [Concomitant]
     Dosage: 600 MG, 2/D
  6. PERCOCET [Concomitant]
     Indication: PAIN IN EXTREMITY
     Dosage: 5 UNK, AS NEEDED
  7. PERCOCET [Concomitant]
     Dosage: 5/325, ONE TABLET
  8. PERCOCET [Concomitant]
     Dosage: 50/50
     Dates: start: 20070615
  9. PERCOCET [Concomitant]
     Dosage: 10/650
     Dates: start: 20070701, end: 20070701
  10. PERCOCET [Concomitant]
     Dosage: 5 PER 325 MG
     Dates: start: 20070701
  11. POTASSIUM CHLORIDE [Concomitant]
     Dosage: 20 MEQ, 2/D
  12. CALCIUM [Concomitant]
     Indication: MINERAL SUPPLEMENTATION
     Dosage: 1000 MG, DAILY (1/D)
  13. XANAX [Concomitant]
     Dosage: 0.5 UNK, 4/D
  14. VITAMIN D [Concomitant]
  15. VITAMIN B-12 [Concomitant]
     Route: 060
  16. VITAMIN B-12 [Concomitant]
  17. FOLIC ACID [Concomitant]
  18. MAGNESIUM [Concomitant]
     Indication: MINERAL SUPPLEMENTATION
  19. CYMBALTA [Concomitant]
     Dosage: 30 MG, DAILY (1/D)
  20. GLYCOLAX [Concomitant]
     Dosage: 1 D/F, 2/D
  21. LYRICA [Concomitant]
     Dates: end: 20070615
  22. AMITRIPTYLINE HCL [Concomitant]
  23. KEPPRA [Concomitant]
  24. DILAUDID [Concomitant]
     Indication: PAIN
     Dosage: UNK, UNK
     Route: 048
     Dates: start: 20070501, end: 20070503
  25. DILAUDID [Concomitant]
     Dosage: TWO OR THREE
     Dates: start: 20070501
  26. DILAUDID [Concomitant]
     Dosage: 4 MG, AS NEEDED
     Route: 048
  27. DILAUDID [Concomitant]
     Dosage: 4 MG, EVERY 4 HRS
     Dates: start: 20070901
  28. LIDODERM [Concomitant]
  29. DEVROM [Concomitant]
  30. CELEBREX [Concomitant]
     Dosage: 200 MG, DAILY (1/D)
     Dates: end: 20060101
  31. EVOXAC [Concomitant]
     Dosage: 30 MG, 3/D
     Dates: start: 20060117
  32. PLAQUENIL                               /NET/ [Concomitant]
     Dosage: 200 MG, DAILY (1/D)
     Dates: start: 20060214, end: 20060223
  33. METHOTREXATE [Concomitant]
     Dosage: 10 MG, UNK
     Route: 030
     Dates: start: 20060414, end: 20060414
  34. METHOTREXATE [Concomitant]
     Dosage: 15 MG, WEEKLY (1/W)
     Route: 030
     Dates: start: 20060421, end: 20060512
  35. METHOTREXATE [Concomitant]
     Dosage: 20 MG, WEEKLY (1/W)
     Dates: start: 20060519, end: 20060609
  36. METHOTREXATE [Concomitant]
     Dosage: 25 MG, WEEKLY (1/W)
     Dates: start: 20060616, end: 20060721
  37. IMURAN [Concomitant]
     Dosage: 50 MG, DAILY (1/D)
     Route: 048
     Dates: start: 20060721, end: 20060818
  38. IMURAN [Concomitant]
     Dosage: 50 MG, 2/D
     Dates: start: 20060818, end: 20061003
  39. IMURAN [Concomitant]
     Dosage: 50 MG, DAILY (1/D)
     Dates: start: 20061003
  40. HUMIRA [Concomitant]
     Dates: start: 20050228

REACTIONS (37)
  - ARACHNOIDITIS [None]
  - ARTHRALGIA [None]
  - ARTHRITIS [None]
  - ARTHROPATHY [None]
  - BLOOD GLUCOSE INCREASED [None]
  - BURSITIS [None]
  - CONSTIPATION [None]
  - ENTEROCOCCAL INFECTION [None]
  - ERYTHEMA [None]
  - FALL [None]
  - FATIGUE [None]
  - FOOT FRACTURE [None]
  - FOOT OPERATION [None]
  - GASTROINTESTINAL MOTILITY DISORDER [None]
  - HEADACHE [None]
  - INSOMNIA [None]
  - JOINT SWELLING [None]
  - LIMB OPERATION [None]
  - LUMBAR RADICULOPATHY [None]
  - NAUSEA [None]
  - NERVOUS SYSTEM DISORDER [None]
  - NEUROMA [None]
  - PAIN [None]
  - PIRIFORMIS SYNDROME [None]
  - POST LUMBAR PUNCTURE SYNDROME [None]
  - POST PROCEDURAL HAEMORRHAGE [None]
  - PROCEDURAL NAUSEA [None]
  - PULSE ABNORMAL [None]
  - SEDATION [None]
  - SLEEP DISORDER [None]
  - SOMNOLENCE [None]
  - SURGERY [None]
  - SYNOVITIS [None]
  - TREATMENT FAILURE [None]
  - URINARY RETENTION [None]
  - VOMITING [None]
  - WRIST FRACTURE [None]
